FAERS Safety Report 9383182 (Version 1)
Quarter: 2013Q3

REPORT INFORMATION
  Report Type: Spontaneous
  Country: FR (occurrence: FR)
  Receive Date: 20130704
  Receipt Date: 20130704
  Transmission Date: 20140515
  Serious: Yes (Other)
  Sender: FDA-Public Use
  Company Number: FR-ASTRAZENECA-2013SE48857

PATIENT
  Age: 49 Year
  Sex: Female

DRUGS (5)
  1. CRESTOR [Suspect]
     Indication: DYSLIPIDAEMIA
     Route: 048
     Dates: start: 20100101, end: 20130101
  2. LECTIL [Concomitant]
     Dosage: LONG LASTING TREATMENT
     Route: 048
  3. VASTAREL [Concomitant]
     Dosage: LONG LASTING TREATMENT
     Route: 048
  4. LEVOTHYROX [Concomitant]
     Dosage: LONG LASTING TREATMENT
     Route: 048
  5. CALCIDOSE VITAMINE D [Concomitant]
     Dosage: LONG LASTING TREATMENT
     Route: 048

REACTIONS (2)
  - Tendonitis [Recovered/Resolved]
  - Myalgia [Recovered/Resolved]
